FAERS Safety Report 18072463 (Version 1)
Quarter: 2020Q3

REPORT INFORMATION
  Report Type: Spontaneous
  Country: US (occurrence: US)
  Receive Date: 20200727
  Receipt Date: 20200727
  Transmission Date: 20201103
  Serious: Yes (Hospitalization, Other)
  Sender: FDA-Public Use
  Company Number: US-TARO-2020TAR01244

PATIENT
  Age: 55 Year
  Sex: Female

DRUGS (1)
  1. DESOXIMETASONE CREAM USP 0.25% [Suspect]
     Active Substance: DESOXIMETASONE
     Indication: ECZEMA
     Dosage: UNK, BID
     Route: 061

REACTIONS (2)
  - Secondary adrenocortical insufficiency [Recovered/Resolved]
  - Stress cardiomyopathy [Recovered/Resolved]
